FAERS Safety Report 4623099-6 (Version None)
Quarter: 2005Q1

REPORT INFORMATION
  Report Type: 
  Country: None (occurrence: None)
  Receive Date: 20050328
  Receipt Date: 20050328
  Transmission Date: 20050727
  Serious: Yes (Disabling, Other)
  Sender: FDA-Public Use
  Company Number: None

PATIENT
  Age: 64 Year
  Sex: Female
  Weight: 57.1532 kg

DRUGS (3)
  1. VALTREX [Suspect]
     Indication: HERPES ZOSTER
     Dosage: 1 TAB 2X DA
     Dates: start: 20050128, end: 20050130
  2. VALTREX [Suspect]
     Indication: PAIN
     Dosage: 1 TAB 2X DA
     Dates: start: 20050128, end: 20050130
  3. VALTREX [Suspect]
     Indication: SWELLING
     Dosage: 1 TAB 2X DA
     Dates: start: 20050128, end: 20050130

REACTIONS (8)
  - ABASIA [None]
  - ASTHENIA [None]
  - FACIAL PAIN [None]
  - HEADACHE [None]
  - MENTAL IMPAIRMENT [None]
  - PAIN [None]
  - SWELLING FACE [None]
  - URTICARIA [None]
